FAERS Safety Report 8641685 (Version 2)
Quarter: 2012Q4

REPORT INFORMATION
  Report Type: 
  Country: US (occurrence: US)
  Receive Date: 20120628
  Receipt Date: 20121115
  Transmission Date: 20130627
  Serious: Yes (Hospitalization, Other)
  Sender: FDA-Public Use
  Company Number: US-PFIZER INC-2012153058

PATIENT
  Age: 47 Year
  Sex: Male
  Weight: 68.03 kg

DRUGS (5)
  1. LYRICA [Suspect]
     Indication: SPINAL COLUMN INJURY
     Dosage: 150 mg, 2x/day
     Route: 048
     Dates: start: 200902
  2. LYRICA [Suspect]
     Indication: FIBROMYALGIA
  3. VIAGRA [Suspect]
  4. MORPHINE [Concomitant]
     Dosage: 60 mg, 3x/day
  5. OXYCODONE [Concomitant]
     Dosage: 30 mg, as needed

REACTIONS (4)
  - Pneumonia [Recovered/Resolved]
  - Parkinson^s disease [Unknown]
  - Weight decreased [Not Recovered/Not Resolved]
  - Blood testosterone decreased [Unknown]
